FAERS Safety Report 8433962-6 (Version None)
Quarter: 2012Q2

REPORT INFORMATION
  Report Type: 
  Country: None (occurrence: None)
  Receive Date: 20120613
  Receipt Date: 20120605
  Transmission Date: 20120825
  Serious: Yes (Other)
  Sender: FDA-Public Use
  Company Number: IT-MILLENNIUM PHARMACEUTICALS, INC.-2012-04124

PATIENT

DRUGS (4)
  1. VELCADE [Suspect]
     Indication: OVARIAN CANCER
     Dosage: 1.3 MG/M2, CYCLIC
     Route: 040
  2. DOXORUBICIN HCL [Suspect]
     Indication: MALIGNANT PERITONEAL NEOPLASM
  3. DOXORUBICIN HCL [Suspect]
     Indication: OVARIAN CANCER
     Dosage: 30 MG/M2, CYCLIC
     Route: 041
  4. VELCADE [Suspect]
     Indication: MALIGNANT PERITONEAL NEOPLASM

REACTIONS (1)
  - PALMAR-PLANTAR ERYTHRODYSAESTHESIA SYNDROME [None]
